FAERS Safety Report 4459003-3 (Version None)
Quarter: 2004Q3

REPORT INFORMATION
  Report Type: 
  Country: None (occurrence: None)
  Receive Date: 20040922
  Receipt Date: 20040922
  Transmission Date: 20050211
  Serious: No
  Sender: FDA-Public Use
  Company Number: None

PATIENT
  Age: 60 Year
  Sex: Female
  Weight: 64.4108 kg

DRUGS (2)
  1. MORPHINE [Suspect]
     Indication: POSTOPERATIVE ANALGESIA
     Dosage: PCA IV
     Route: 042
     Dates: start: 20040711
  2. PROMETHAZINE [Suspect]
     Dosage: 12.5 MG IV
     Route: 042
     Dates: start: 20040711

REACTIONS (5)
  - HEART RATE INCREASED [None]
  - HYPOXIA [None]
  - NAUSEA [None]
  - PULMONARY OEDEMA [None]
  - PYREXIA [None]
